FAERS Safety Report 13163683 (Version 1)
Quarter: 2017Q1

REPORT INFORMATION
  Report Type: Spontaneous
  Country: US (occurrence: US)
  Receive Date: 20170130
  Receipt Date: 20170130
  Transmission Date: 20170428
  Serious: No
  Sender: FDA-Public Use
  Company Number: GXBR2016US003495

PATIENT
  Sex: Female

DRUGS (6)
  1. PROVENTIL [Concomitant]
     Active Substance: ALBUTEROL
     Dosage: UNK DF, UNK
     Route: 065
  2. NEURONTIN [Concomitant]
     Active Substance: GABAPENTIN
     Dosage: UNK DF, UNK
     Route: 065
  3. AMANTADINE SANDOZ [Suspect]
     Active Substance: AMANTADINE
     Indication: DEPRESSION
     Dosage: 200 MG, BID
     Route: 048
  4. SYMBICORT [Concomitant]
     Active Substance: BUDESONIDE\FORMOTEROL FUMARATE DIHYDRATE
     Dosage: UNK DF, UNK
     Route: 065
  5. SF 5000 PLUS [Concomitant]
     Active Substance: SODIUM FLUORIDE
     Dosage: UNK DF, UNK
     Route: 065
  6. FLUPHENAZINE [Concomitant]
     Active Substance: FLUPHENAZINE
     Dosage: UNK DF, UNK
     Route: 065

REACTIONS (10)
  - Arthralgia [Not Recovered/Not Resolved]
  - Dental caries [Not Recovered/Not Resolved]
  - Pruritus [Recovering/Resolving]
  - Back pain [Not Recovered/Not Resolved]
  - Rash [Recovering/Resolving]
  - Accident at home [Not Recovered/Not Resolved]
  - Contusion [Not Recovered/Not Resolved]
  - Neck pain [Not Recovered/Not Resolved]
  - Balance disorder [Not Recovered/Not Resolved]
  - Photophobia [Not Recovered/Not Resolved]
